FAERS Safety Report 8985886 (Version 1)
Quarter: 2012Q4

REPORT INFORMATION
  Report Type: 
  Country: US (occurrence: US)
  Receive Date: 20121226
  Receipt Date: 20121226
  Transmission Date: 20130627
  Serious: Yes (Other)
  Sender: FDA-Public Use
  Company Number: PHHY2012US115950

PATIENT
  Age: 64 Year
  Sex: Female

DRUGS (4)
  1. PAMIDRONATE DISODIUM [Suspect]
     Indication: MULTIPLE MYELOMA
     Dosage: UNK UKN, QMO
  2. IMATINIB [Suspect]
     Indication: MULTIPLE MYELOMA
     Dosage: UNK UKN, UNK
  3. DEXAMETHASONE SANDOZ [Suspect]
     Indication: MULTIPLE MYELOMA
     Dosage: UNK UKN, UNK
  4. LENALIDOMIDE [Suspect]
     Dosage: UNK UKN, UNK

REACTIONS (8)
  - Plasma cell myeloma [Unknown]
  - Monoclonal immunoglobulin present [Unknown]
  - Malignant neoplasm progression [Unknown]
  - Osteonecrosis of jaw [Unknown]
  - Facial pain [Unknown]
  - Paraesthesia [Unknown]
  - Dysgeusia [Unknown]
  - Nausea [Unknown]
